FAERS Safety Report 15896684 (Version 1)
Quarter: 2019Q1

REPORT INFORMATION
  Report Type: Report from Study
  Country: DE (occurrence: DE)
  Receive Date: 20190131
  Receipt Date: 20190131
  Transmission Date: 20190417
  Serious: Yes (Hospitalization)
  Sender: FDA-Public Use
  Company Number: PHHY2019DE017778

PATIENT
  Sex: Female

DRUGS (5)
  1. METHOTREXATE. [Suspect]
     Active Substance: METHOTREXATE
     Dosage: 5.0 MG, UNK
     Route: 065
     Dates: start: 20170308
  2. NO TREATMENT RECEIVED [Suspect]
     Active Substance: UNSPECIFIED INGREDIENT
     Indication: PRODUCT USED FOR UNKNOWN INDICATION
     Route: 065
  3. METHOTREXATE. [Suspect]
     Active Substance: METHOTREXATE
     Indication: PRODUCT USED FOR UNKNOWN INDICATION
     Dosage: 5.0 MG, UNK
     Route: 065
     Dates: start: 20160920
  4. METHOTREXATE. [Suspect]
     Active Substance: METHOTREXATE
     Dosage: 5.0 MG, UNK
     Route: 065
     Dates: start: 20161216
  5. MABTHERA [Suspect]
     Active Substance: RITUXIMAB
     Indication: PRODUCT USED FOR UNKNOWN INDICATION
     Dosage: 500 MG, UNK
     Route: 065
     Dates: start: 201609

REACTIONS (6)
  - Nasopharyngitis [Unknown]
  - Dehydration [Unknown]
  - Renal failure [Unknown]
  - Acute kidney injury [Unknown]
  - Urinary tract infection [Unknown]
  - Atrial flutter [Unknown]

NARRATIVE: CASE EVENT DATE: 20180326
